FAERS Safety Report 10654436 (Version 1)
Quarter: 2014Q4

REPORT INFORMATION
  Report Type: Spontaneous
  Country: CH (occurrence: None)
  Receive Date: 20141212
  Receipt Date: 20141212
  Transmission Date: 20150529
  Serious: Yes (Hospitalization)
  Sender: FDA-Public Use
  Company Number: 20140790

PATIENT
  Age: 40 Year
  Sex: Female
  Weight: 90 kg

DRUGS (3)
  1. FERINJECT [Suspect]
     Active Substance: FERRIC CARBOXYMALTOSE
     Indication: BLOOD IRON DECREASED
     Dosage: 500MG 2 TOTAL DOSES, INTRAVENOUS DRIP
     Route: 041
     Dates: start: 20140918, end: 20140925
  2. FLUCTINE [Suspect]
     Active Substance: FLUOXETINE HYDROCHLORIDE
     Indication: DEPRESSION
     Dosage: DOSE NOT REPORTED
     Dates: start: 201409
  3. ELYFEM 20 [Suspect]
     Active Substance: ETHINYL ESTRADIOL\LEVONORGESTREL
     Indication: CONTRACEPTION
     Dosage: DOSE NOT REPORTED ORAL
     Route: 048
     Dates: start: 201301

REACTIONS (5)
  - Dyspnoea [None]
  - Palpitations [None]
  - Pulmonary embolism [None]
  - Headache [None]
  - Malaise [None]

NARRATIVE: CASE EVENT DATE: 20140918
